FAERS Safety Report 8609104-0 (Version None)
Quarter: 2012Q3

REPORT INFORMATION
  Report Type: 
  Country: None (occurrence: None)
  Receive Date: 20120821
  Receipt Date: 20120809
  Transmission Date: 20120928
  Serious: Yes (Hospitalization)
  Sender: FDA-Public Use
  Company Number: US-ELI_LILLY_AND_COMPANY-US201208003938

PATIENT
  Sex: Male

DRUGS (2)
  1. ZYPREXA RELPREVV [Suspect]
     Dosage: 300 MG, UNKNOWN
  2. METHAMPHETAMINE HYDROCHLORIDE [Concomitant]

REACTIONS (1)
  - HOSPITALISATION [None]
